FAERS Safety Report 23770617 (Version 1)
Quarter: 2024Q2

REPORT INFORMATION
  Report Type: Spontaneous
  Country: US (occurrence: US)
  Receive Date: 20240422
  Receipt Date: 20240422
  Transmission Date: 20240716
  Serious: Yes (Other)
  Sender: FDA-Public Use
  Company Number: US-MALLINCKRODT-MNK202402550

PATIENT
  Sex: Male

DRUGS (2)
  1. CORTICOTROPIN [Suspect]
     Active Substance: CORTICOTROPIN
     Indication: Rheumatoid arthritis
     Route: 030
  2. HUMIRA [Concomitant]
     Active Substance: ADALIMUMAB
     Dosage: UNKNOWN

REACTIONS (1)
  - Haemorrhage [Unknown]
